FAERS Safety Report 22099718 (Version 1)
Quarter: 2023Q1

REPORT INFORMATION
  Report Type: Spontaneous
  Country: US (occurrence: None)
  Receive Date: 20230315
  Receipt Date: 20230315
  Transmission Date: 20230418
  Serious: Yes (Hospitalization)
  Sender: FDA-Public Use
  Company Number: None

PATIENT
  Sex: Female

DRUGS (1)
  1. NUCALA [Suspect]
     Active Substance: MEPOLIZUMAB
     Indication: Asthma
     Dosage: 100 MG/ML ??INJECT 1 ML UNDER THE SKIN (SUBCUTANEOUS INJECTION) ONCE EVERY FOUR WEEKS?
     Route: 058
     Dates: start: 20210409

REACTIONS (5)
  - Asthma [None]
  - Back pain [None]
  - Fatigue [None]
  - Headache [None]
  - Quality of life decreased [None]
